FAERS Safety Report 7735521-7 (Version None)
Quarter: 2011Q3

REPORT INFORMATION
  Report Type: 
  Country: None (occurrence: None)
  Receive Date: 20110907
  Receipt Date: 20110826
  Transmission Date: 20111222
  Serious: Yes (Other)
  Sender: FDA-Public Use
  Company Number: US-BAYER-2011-013524

PATIENT
  Sex: Female
  Weight: 81.633 kg

DRUGS (4)
  1. IBUPROFEN [Concomitant]
     Indication: HEADACHE
     Dosage: 400 MG, UNK
  2. YASMIN [Suspect]
     Indication: PREMENSTRUAL SYNDROME
     Dosage: UNK
     Dates: start: 20040301, end: 20081001
  3. ACETAMINOPHEN [Concomitant]
     Indication: PAIN
     Dosage: 1000 MG, PRN
  4. CLARITIN [Concomitant]
     Indication: MULTIPLE ALLERGIES
     Dosage: 10 MG, UNK

REACTIONS (14)
  - INJURY [None]
  - PAIN [None]
  - ABDOMINAL PAIN [None]
  - HEADACHE [None]
  - STRESS [None]
  - EMOTIONAL DISTRESS [None]
  - GALLBLADDER DISORDER [None]
  - ANXIETY [None]
  - VOMITING [None]
  - OROPHARYNGEAL PAIN [None]
  - DIARRHOEA [None]
  - MENTAL DISORDER [None]
  - NAUSEA [None]
  - DEPRESSION [None]
